FAERS Safety Report 20159701 (Version 2)
Quarter: 2022Q1

REPORT INFORMATION
  Report Type: Spontaneous
  Country: DE (occurrence: DE)
  Receive Date: 20211208
  Receipt Date: 20220201
  Transmission Date: 20220423
  Serious: Yes (Other)
  Sender: FDA-Public Use
  Company Number: DE-SANOFI-00875529

PATIENT
  Age: 50 Year
  Sex: Female

DRUGS (6)
  1. CABLIVI [Suspect]
     Active Substance: CAPLACIZUMAB-YHDP
     Dosage: UNK
  2. PIPERACILLIN [Concomitant]
     Active Substance: PIPERACILLIN
     Indication: Infection
     Dosage: 4/0.5MG TID
  3. DIHYDRALAZINE [Concomitant]
     Active Substance: DIHYDRALAZINE
  4. PREDNISOLONE [Concomitant]
     Active Substance: PREDNISOLONE
     Indication: Thrombotic thrombocytopenic purpura
     Dosage: 100 MG, QD
  5. INSULIN HUMAN [Concomitant]
     Active Substance: INSULIN HUMAN
  6. PANTOPRAZOLE [Concomitant]
     Active Substance: PANTOPRAZOLE
     Dosage: 40 MG, QD

REACTIONS (1)
  - Pulmonary embolism [Unknown]
